FAERS Safety Report 7794759-3 (Version None)
Quarter: 2011Q3

REPORT INFORMATION
  Report Type: 
  Country: None (occurrence: None)
  Receive Date: 20110929
  Receipt Date: 20110923
  Transmission Date: 20111222
  Serious: Yes (Hospitalization)
  Sender: FDA-Public Use
  Company Number: 2011SP035356

PATIENT
  Sex: Female

DRUGS (10)
  1. EFFEXOR [Suspect]
     Indication: DEPRESSION
     Dosage: 75 MG;QD;PO
     Route: 048
  2. EFFEXOR [Suspect]
     Indication: SCHIZOPHRENIA
     Dosage: 75 MG;QD;PO
     Route: 048
  3. LORAZEPAM [Suspect]
     Indication: DEPRESSION
     Dosage: 1 MG;QD;PO
     Route: 048
  4. DIAMICRON [Concomitant]
  5. ZOLPIDEM [Suspect]
     Indication: INSOMNIA
     Dosage: 5 MG; QD;PO
     Route: 048
  6. SOLIAN [Concomitant]
  7. METFORMIN HCL [Suspect]
     Indication: TYPE 2 DIABETES MELLITUS
     Dosage: 500 MG;BID;PO
     Route: 048
     Dates: start: 20090101, end: 20110511
  8. CALCIMAGON D3 [Concomitant]
  9. REMERON [Suspect]
     Indication: PRODUCT USED FOR UNKNOWN INDICATION
     Dosage: 15 MG;QD;PO
     Route: 048
  10. INSULIN [Concomitant]

REACTIONS (2)
  - HEPATIC STEATOSIS [None]
  - CHOLESTATIC LIVER INJURY [None]
